FAERS Safety Report 10235127 (Version 3)
Quarter: 2014Q4

REPORT INFORMATION
  Report Type: Spontaneous
  Country: US (occurrence: None)
  Receive Date: 20140611
  Receipt Date: 20141121
  Transmission Date: 20150528
  Serious: Yes (Hospitalization)
  Sender: FDA-Public Use
  Company Number: FK201402242

PATIENT
  Age: 70 Year
  Sex: Male
  Weight: 80.8 kg

DRUGS (8)
  1. AVASTIN [Suspect]
     Active Substance: BEVACIZUMAB
     Indication: COLORECTAL CANCER METASTATIC
     Dosage: 435 MG, CYCLIC Q2, INTRAVENOUS (NOT OTHERWISE SPECIFIED)
     Route: 042
     Dates: start: 20140120
  2. ASPIRIN. [Concomitant]
     Active Substance: ASPIRIN
  3. FLUOROURACIL. [Suspect]
     Active Substance: FLUOROURACIL
     Indication: COLORECTAL CANCER METASTATIC
     Dosage: 776 MG, CYCLIC Q2, INTRAVENOUS BOLUS?
     Route: 040
     Dates: start: 20140120
  4. INSULIN GLARGINE [Concomitant]
     Active Substance: INSULIN GLARGINE
  5. OXALIPLATIN. [Suspect]
     Active Substance: OXALIPLATIN
     Indication: COLORECTAL CANCER METASTATIC
     Dosage: 165 MG, CYCLIC Q2, INTRAVENOUS (NOT OTHERWISE SPECIFIED)
     Route: 042
     Dates: start: 20140120
  6. WARFARIN [Concomitant]
     Active Substance: WARFARIN
  7. VALIUM [Concomitant]
     Active Substance: DIAZEPAM
  8. OXYCODONE [Concomitant]
     Active Substance: OXYCODONE

REACTIONS (3)
  - Abdominal pain [None]
  - Abdominal distension [None]
  - Enteritis [None]

NARRATIVE: CASE EVENT DATE: 20140217
